FAERS Safety Report 16862565 (Version 2)
Quarter: 2019Q4

REPORT INFORMATION
  Report Type: Spontaneous
  Country: CA (occurrence: CA)
  Receive Date: 20190927
  Receipt Date: 20191119
  Transmission Date: 20200122
  Serious: Yes (Other)
  Sender: FDA-Public Use
  Company Number: CA-PFIZER INC-2019191256

PATIENT
  Age: 76 Year
  Sex: Male
  Weight: 74 kg

DRUGS (8)
  1. XELJANZ [Suspect]
     Active Substance: TOFACITINIB CITRATE
     Dosage: 5 MG, 2X/DAY
     Route: 048
     Dates: start: 20190601, end: 20190920
  2. XELJANZ [Suspect]
     Active Substance: TOFACITINIB CITRATE
     Indication: COLITIS ULCERATIVE
     Dosage: 10 MG, 2X/DAY
     Route: 048
     Dates: start: 20190206, end: 20190412
  3. REMICADE [Concomitant]
     Active Substance: INFLIXIMAB
     Indication: COLITIS ULCERATIVE
  4. PREDNISONE. [Concomitant]
     Active Substance: PREDNISONE
     Dosage: 20 MG, DAILY
     Dates: start: 20190417, end: 2019
  5. PREDNISONE. [Concomitant]
     Active Substance: PREDNISONE
     Dosage: 5 MG, DAILY
     Dates: start: 2019
  6. ENTYVIO [Concomitant]
     Active Substance: VEDOLIZUMAB
     Indication: COLITIS ULCERATIVE
  7. XELJANZ [Suspect]
     Active Substance: TOFACITINIB CITRATE
     Dosage: 10 MG, 2X/DAY
     Route: 048
     Dates: start: 20190417, end: 20190531
  8. PREDNISONE. [Concomitant]
     Active Substance: PREDNISONE
     Indication: COLITIS ULCERATIVE
     Dosage: 40 MG DAILY
     Dates: start: 20190412, end: 20190416

REACTIONS (4)
  - Drug ineffective [Unknown]
  - Crohn^s disease [Unknown]
  - Diarrhoea [Recovered/Resolved]
  - Condition aggravated [Not Recovered/Not Resolved]

NARRATIVE: CASE EVENT DATE: 2019
